FAERS Safety Report 23692502 (Version 8)
Quarter: 2024Q4

REPORT INFORMATION
  Report Type: Spontaneous
  Country: US (occurrence: US)
  Receive Date: 20240401
  Receipt Date: 20241225
  Transmission Date: 20250114
  Serious: Yes (Hospitalization, Disabling, Other)
  Sender: ORGANON
  Company Number: US-ORGANON-O2403USA003220

PATIENT
  Sex: Male
  Weight: 60.499 kg

DRUGS (11)
  1. SINGULAIR [Suspect]
     Active Substance: MONTELUKAST SODIUM
     Indication: Asthma prophylaxis
     Dosage: 5 MILLIGRAM
     Route: 048
     Dates: start: 2003, end: 2007
  2. SINGULAIR [Suspect]
     Active Substance: MONTELUKAST SODIUM
     Indication: Bronchospasm
     Dosage: 5 MILLIGRAM
     Route: 048
     Dates: start: 2007, end: 2008
  3. SINGULAIR [Suspect]
     Active Substance: MONTELUKAST SODIUM
     Indication: Rhinitis allergic
     Dosage: 5 MILLIGRAM
     Route: 048
     Dates: start: 2008, end: 2010
  4. SINGULAIR [Suspect]
     Active Substance: MONTELUKAST SODIUM
     Indication: Asthma
     Dosage: 5 MILLIGRAM
     Route: 048
     Dates: start: 2010
  5. SINGULAIR [Suspect]
     Active Substance: MONTELUKAST SODIUM
     Dosage: 10 MILLIGRAM, QH
     Route: 048
     Dates: start: 2019, end: 2020
  6. SINGULAIR [Suspect]
     Active Substance: MONTELUKAST SODIUM
     Dosage: 1 TABLET, QD (IN THE EVENING)
     Route: 048
  7. LORATADINE [Concomitant]
     Active Substance: LORATADINE
     Indication: Asthma
     Dosage: 10 MILLIGRAM
     Dates: start: 2008
  8. FLUTICASONE [Concomitant]
     Active Substance: FLUTICASONE
     Indication: Asthma
     Dosage: 50 MICROGRAM
     Dates: start: 2009
  9. PROVENTIL [Concomitant]
     Active Substance: ALBUTEROL
     Indication: Asthma
     Dosage: 160/4.5 MICROGRAM
     Dates: start: 2009
  10. SYMBICORT [Concomitant]
     Active Substance: BUDESONIDE\FORMOTEROL FUMARATE DIHYDRATE
     Indication: Asthma
     Dosage: 160/4.5 MCG
     Dates: start: 2013
  11. SPIRIVA RESPIMAT [Concomitant]
     Active Substance: TIOTROPIUM BROMIDE
     Indication: Asthma
     Dosage: 1.25 MILLIGRAM
     Dates: start: 2019

REACTIONS (30)
  - Depression [Not Recovered/Not Resolved]
  - Respiratory syncytial virus infection [Unknown]
  - Somatic symptom disorder [Unknown]
  - Aggression [Unknown]
  - Suicidal behaviour [Unknown]
  - Suicidal ideation [Not Recovered/Not Resolved]
  - Neuropsychological symptoms [Not Recovered/Not Resolved]
  - Anxiety [Not Recovered/Not Resolved]
  - Autism spectrum disorder [Unknown]
  - Bipolar disorder [Not Recovered/Not Resolved]
  - Anger [Not Recovered/Not Resolved]
  - Attention deficit hyperactivity disorder [Not Recovered/Not Resolved]
  - Schizoaffective disorder [Not Recovered/Not Resolved]
  - Agitation [Recovered/Resolved]
  - Bipolar I disorder [Not Recovered/Not Resolved]
  - Suicidal ideation [Not Recovered/Not Resolved]
  - Depression [Not Recovered/Not Resolved]
  - Mental disorder [Not Recovered/Not Resolved]
  - Mood altered [Not Recovered/Not Resolved]
  - Impulse-control disorder [Not Recovered/Not Resolved]
  - Nasal congestion [Unknown]
  - Cough [Unknown]
  - Eye pruritus [Unknown]
  - Oppositional defiant disorder [Unknown]
  - Mania [Unknown]
  - Disruptive mood dysregulation disorder [Not Recovered/Not Resolved]
  - Asthma [Unknown]
  - Learning disability [Unknown]
  - Generalised anxiety disorder [Unknown]
  - Mood swings [Recovering/Resolving]

NARRATIVE: CASE EVENT DATE: 20100101
